FAERS Safety Report 10170940 (Version 1)
Quarter: 2014Q2

REPORT INFORMATION
  Report Type: Spontaneous
  Country: US (occurrence: None)
  Receive Date: 20140513
  Receipt Date: 20140513
  Transmission Date: 20141212
  Serious: Yes (Death)
  Sender: FDA-Public Use
  Company Number: None

PATIENT
  Age: 85 Year
  Sex: Female

DRUGS (12)
  1. AZITHROMYCIN [Suspect]
     Indication: PNEUMONIA
     Route: 042
     Dates: start: 20130201, end: 20130201
  2. AMLODIPINE [Concomitant]
  3. ASPIRIN [Concomitant]
  4. ENALAPRIL [Concomitant]
  5. FUROSEMIDE [Concomitant]
  6. ISOSORBIDE [Concomitant]
  7. MONONITRATE [Concomitant]
  8. METOPROLOL [Concomitant]
  9. POTASSIUM CHLORIDE [Concomitant]
  10. PRAVASTATIN [Concomitant]
  11. VALSARTAN [Concomitant]
  12. WARFARIN [Concomitant]

REACTIONS (4)
  - Unresponsive to stimuli [None]
  - Bradycardia [None]
  - Hypothermia [None]
  - Cardio-respiratory arrest [None]
